FAERS Safety Report 6296565-8 (Version None)
Quarter: 2009Q3

REPORT INFORMATION
  Report Type: 
  Country: None (occurrence: None)
  Receive Date: 20090804
  Receipt Date: 20090731
  Transmission Date: 20100115
  Serious: Yes (Hospitalization)
  Sender: FDA-Public Use
  Company Number: DE-PFIZER INC-2008091344

PATIENT
  Age: 49 Year

DRUGS (11)
  1. BLINDED *NO SUBJECT DRUG [Suspect]
     Indication: HYPERTONIC BLADDER
     Dosage: UNK
     Route: 048
     Dates: start: 20080916, end: 20081008
  2. BLINDED *PLACEBO [Suspect]
     Indication: HYPERTONIC BLADDER
     Dosage: UNK
     Route: 048
     Dates: start: 20080916, end: 20081008
  3. BLINDED FESOTERODINE [Suspect]
     Indication: HYPERTONIC BLADDER
     Dosage: UNK
     Route: 048
     Dates: start: 20080916, end: 20081008
  4. TOLTERODINE TARTRATE [Suspect]
     Indication: HYPERTONIC BLADDER
     Dosage: UNK
     Route: 048
     Dates: start: 20080916, end: 20081008
  5. BLINDED *NO SUBJECT DRUG [Suspect]
     Dosage: UNK
     Route: 048
     Dates: start: 20081011, end: 20081105
  6. BLINDED *PLACEBO [Suspect]
     Dosage: UNK
     Route: 048
     Dates: start: 20081011, end: 20081105
  7. BLINDED FESOTERODINE [Suspect]
     Dosage: UNK
     Route: 048
     Dates: start: 20081011, end: 20081105
  8. BLINDED TOLTERODINE TARTRATE [Suspect]
     Dosage: UNK
     Route: 048
     Dates: start: 20081011, end: 20081105
  9. PLACEBO [Suspect]
     Indication: HYPERTONIC BLADDER
     Dosage: UNK
     Dates: start: 20080916, end: 20080929
  10. L-THYROXIN [Concomitant]
     Route: 048
     Dates: start: 20040101
  11. RUDOTEL [Concomitant]
     Route: 048
     Dates: start: 20080201

REACTIONS (1)
  - PYELONEPHRITIS ACUTE [None]
